FAERS Safety Report 9399303 (Version 2)
Quarter: 2013Q3

REPORT INFORMATION
  Report Type: Spontaneous
  Country: US (occurrence: US)
  Receive Date: 20130715
  Receipt Date: 20130809
  Transmission Date: 20140515
  Serious: Yes (Other)
  Sender: FDA-Public Use
  Company Number: US-PFIZER INC-2013206421

PATIENT
  Age: 67 Year
  Sex: Female
  Weight: 73.5 kg

DRUGS (2)
  1. ZOLOFT [Suspect]
     Indication: DEPRESSION
     Dosage: UNK
  2. CELEBREX [Concomitant]
     Dosage: UNK

REACTIONS (2)
  - Diabetes mellitus [Unknown]
  - Abdominal discomfort [Unknown]
